FAERS Safety Report 15146958 (Version 3)
Quarter: 2022Q3

REPORT INFORMATION
  Report Type: Spontaneous
  Country: FR (occurrence: FR)
  Receive Date: 20180716
  Receipt Date: 20220908
  Transmission Date: 20221027
  Serious: Yes (Other)
  Sender: FDA-Public Use
  Company Number: FR-SA-2018SA155801

PATIENT
  Age: 11 Year
  Sex: Male

DRUGS (8)
  1. LEVETIRACETAM [Suspect]
     Active Substance: LEVETIRACETAM
     Indication: Seizure
     Dosage: 450 MG, 2X/DAY (BID)
     Dates: start: 2008
  2. LEVETIRACETAM [Suspect]
     Active Substance: LEVETIRACETAM
     Dosage: 900 MG, 2X/DAY (BID)
     Dates: start: 201509
  3. OXCARBAZEPINE [Suspect]
     Active Substance: OXCARBAZEPINE
     Indication: Seizure
     Dosage: 300 MG, 2X/DAY (BID)
     Dates: start: 2008, end: 201509
  4. RISPERIDONE [Suspect]
     Active Substance: RISPERIDONE
     Indication: Behaviour disorder
     Dosage: 0.25 MG, ONCE DAILY (QD)
     Dates: start: 201508, end: 201509
  5. ARIPIPRAZOLE [Suspect]
     Active Substance: ARIPIPRAZOLE
     Indication: Behaviour disorder
     Dosage: 5 MG, ONCE DAILY (QD)
     Dates: start: 201509, end: 201601
  6. ARIPIPRAZOLE [Suspect]
     Active Substance: ARIPIPRAZOLE
     Indication: Aggression
  7. ARIPIPRAZOLE [Suspect]
     Active Substance: ARIPIPRAZOLE
     Indication: Behaviour disorder
  8. TOPIRAMATE [Concomitant]
     Active Substance: TOPIRAMATE
     Indication: Seizure
     Dosage: 50 MILLIGRAM DAILY

REACTIONS (4)
  - Rebound effect [Unknown]
  - Seizure [Unknown]
  - Urinary retention [Recovered/Resolved]
  - Micturition frequency decreased [Recovered/Resolved]

NARRATIVE: CASE EVENT DATE: 20150801
